FAERS Safety Report 18253890 (Version 1)
Quarter: 2020Q3

REPORT INFORMATION
  Report Type: Report from Study
  Country: US (occurrence: US)
  Receive Date: 20200910
  Receipt Date: 20200910
  Transmission Date: 20201103
  Serious: Yes (Other)
  Sender: FDA-Public Use
  Company Number: US-JNJFOC-20200905660

PATIENT
  Age: 66 Year
  Sex: Female

DRUGS (5)
  1. SPRAVATO [Suspect]
     Active Substance: ESKETAMINE
     Dates: start: 20200715, end: 20200824
  2. SPRAVATO [Suspect]
     Active Substance: ESKETAMINE
     Indication: DEPRESSION
     Dates: start: 20200609, end: 20200609
  3. SPRAVATO [Suspect]
     Active Substance: ESKETAMINE
     Dates: start: 20200828, end: 20200828
  4. SPRAVATO [Suspect]
     Active Substance: ESKETAMINE
     Dates: start: 20200611, end: 20200709
  5. SPRAVATO [Suspect]
     Active Substance: ESKETAMINE
     Dates: start: 20200713, end: 20200713

REACTIONS (4)
  - Sedation [Recovered/Resolved]
  - Bradyphrenia [Recovered/Resolved]
  - Dystonia [Recovered/Resolved]
  - Dissociation [Recovered/Resolved]

NARRATIVE: CASE EVENT DATE: 20200828
